FAERS Safety Report 6522194-4 (Version None)
Quarter: 2009Q4

REPORT INFORMATION
  Report Type: 
  Country: None (occurrence: None)
  Receive Date: 20091229
  Receipt Date: 20091229
  Transmission Date: 20100525
  Serious: Yes (Hospitalization)
  Sender: FDA-Public Use
  Company Number: None

PATIENT
  Age: 50 Year
  Sex: Female

DRUGS (2)
  1. TACROLIMUS [Suspect]
     Indication: BONE MARROW TRANSPLANT
     Dosage: 2 MG PO BID
     Route: 048
     Dates: start: 20090911, end: 20090914
  2. SIROLIMUS [Suspect]
     Indication: BONE MARROW TRANSPLANT
     Dosage: 2MG PO BID
     Route: 048
     Dates: start: 20090911, end: 20090914

REACTIONS (4)
  - BLOOD CREATININE INCREASED [None]
  - DIARRHOEA [None]
  - OLIGURIA [None]
  - WHITE BLOOD CELL COUNT INCREASED [None]
